FAERS Safety Report 6993603-1 (Version None)
Quarter: 2010Q3

REPORT INFORMATION
  Report Type: 
  Country: None (occurrence: None)
  Receive Date: 20100917
  Receipt Date: 20100915
  Transmission Date: 20110219
  Serious: Yes (Death)
  Sender: FDA-Public Use
  Company Number: PHHO2010AT14055

PATIENT
  Sex: Male
  Weight: 97.6 kg

DRUGS (9)
  1. BLINDED ALISKIREN ALI+TAB+CF [Suspect]
     Dosage: DOUBLE BLIND
     Route: 048
     Dates: start: 20090505, end: 20090518
  2. ENALAPRIL MALEATE [Suspect]
     Dosage: DOUBLE BLIND
     Route: 048
     Dates: start: 20090505, end: 20090518
  3. BLINDED NO TREATMENT RECEIVED NOMED [Suspect]
     Dosage: DOUBLE BLIND
     Route: 048
     Dates: start: 20090505, end: 20090518
  4. BLINDED ALISKIREN ALI+TAB+CF [Suspect]
     Dosage: DOUBLE BLIND
     Route: 048
     Dates: start: 20090519
  5. ENALAPRIL MALEATE [Suspect]
     Dosage: DOUBLE BLIND
     Route: 048
     Dates: start: 20090519
  6. BLINDED NO TREATMENT RECEIVED NOMED [Suspect]
     Dosage: DOUBLE BLIND
     Route: 048
     Dates: start: 20090519
  7. ALISKIREN [Suspect]
     Indication: CARDIAC FAILURE
     Dosage: UNK
     Dates: start: 20090415, end: 20090504
  8. COMPARATOR ENALAPRIL [Suspect]
     Indication: CARDIAC FAILURE
     Dosage: UNK
     Dates: start: 20090325, end: 20090414
  9. COMPARATOR ENALAPRIL [Suspect]
     Dosage: UNK

REACTIONS (1)
  - DEATH [None]
